FAERS Safety Report 10409382 (Version 1)
Quarter: 2014Q2

REPORT INFORMATION
  Report Type: Spontaneous
  Country: US (occurrence: None)
  Receive Date: 20140604
  Receipt Date: 20140604
  Transmission Date: 20141212
  Serious: Yes (Hospitalization, Other)
  Sender: FDA-Public Use
  Company Number: 163-POMAL-14032698

PATIENT
  Age: 76 Year
  Sex: Female
  Weight: 70.8 kg

DRUGS (17)
  1. POMALYST (POMALIDOMIDE) (4 MILLIGRAM, CAPSULES) [Suspect]
     Indication: PLASMA CELL MYELOMA
     Dosage: 21IN21D
     Route: 048
     Dates: start: 20140203
  2. REGLAN (METOCLOPRAMIDE) [Concomitant]
  3. PEPCID (FAMOTIDINE) [Concomitant]
  4. MUCINEX (GUAIFENESIN) [Concomitant]
  5. MAGNESIUM (MAGNESIIUM) [Concomitant]
  6. IRON (IRON) [Concomitant]
  7. CALCIUM (CALCIUM) [Concomitant]
  8. BIOTENE (GLUCOSE OXIDASE) [Concomitant]
  9. BUDESONIDE (BUDESONIDE) [Concomitant]
  10. ACYCLOVIR (ACYCLOVIR) [Concomitant]
  11. METRONIDAZOLE (METRONIDAZOLE) [Concomitant]
  12. AMOX TR-K [Concomitant]
  13. AMLODIPINE (AMLODIPINE) [Concomitant]
  14. WARFARIN SODIUM (WARFARIN SODIUM) [Concomitant]
  15. OXYCONTIN (OXYCODONE HYDROCHLORIDE) [Concomitant]
  16. DEXAMETHASONE (DEXAMETHASONE) [Concomitant]
  17. VITAMIN D2 (ERGOCALCIFEROL) [Concomitant]

REACTIONS (2)
  - Dyspnoea [None]
  - Pneumonia [None]
